FAERS Safety Report 9548427 (Version 2)
Quarter: 2013Q3

REPORT INFORMATION
  Report Type: Report from Study
  Country: DE (occurrence: DE)
  Receive Date: 20130924
  Receipt Date: 20130924
  Transmission Date: 20140515
  Serious: Yes (Hospitalization)
  Sender: FDA-Public Use
  Company Number: DE-ROCHE-1258663

PATIENT
  Age: 72 Year
  Sex: Female
  Weight: 52.5 kg

DRUGS (8)
  1. BEVACIZUMAB [Suspect]
     Indication: OVARIAN CANCER
     Dosage: LAST DOSE PRIOR TO SAE: 01/AUG/2013
     Route: 042
     Dates: start: 20130801
  2. BEVACIZUMAB [Suspect]
     Dosage: DOSE REDUCED
     Route: 042
  3. PACLITAXEL [Suspect]
     Indication: OVARIAN CANCER
     Dosage: LAST DOSE PRIOR TOSAE: 01/AUG/2013.
     Route: 042
     Dates: start: 20130711
  4. PACLITAXEL [Suspect]
     Dosage: DOSE REDUCED. LAST DOSE PRIOR TOSAE: 22/AUG/2013.
     Route: 042
  5. CARBOPLATIN [Suspect]
     Indication: OVARIAN CANCER
     Dosage: LAST DOSE PRIOR TO SAE: 01/AUG/2013.
     Route: 042
     Dates: start: 20130801
  6. CARBOPLATIN [Suspect]
     Dosage: DOSE REDUCED. LAST DOSE PRIOR TO SAE: 29/AUG/2013.
     Route: 042
  7. REKAWAN [Concomitant]
  8. MIRTAZAPIN [Concomitant]

REACTIONS (2)
  - Abdominal pain upper [Not Recovered/Not Resolved]
  - Dysarthria [Not Recovered/Not Resolved]
